FAERS Safety Report 21611418 (Version 3)
Quarter: 2022Q4

REPORT INFORMATION
  Report Type: Report from Study
  Country: CL (occurrence: CL)
  Receive Date: 20221117
  Receipt Date: 20221205
  Transmission Date: 20230112
  Serious: Yes (Life-Threatening, Other)
  Sender: FDA-Public Use
  Company Number: CL-BRISTOL-MYERS SQUIBB COMPANY-2022-132830

PATIENT
  Age: 70 Year
  Sex: Female
  Weight: 64 kg

DRUGS (8)
  1. NIVOLUMAB [Suspect]
     Active Substance: NIVOLUMAB
     Indication: Renal cell carcinoma
     Dosage: DRUG INTERRUPTED?RECEIVED ONLY ONE DOSE OF STUDY THERAPY
     Route: 042
     Dates: start: 20221018
  2. LOSARTAN [Concomitant]
     Active Substance: LOSARTAN
     Indication: Product used for unknown indication
     Dosage: EVERY 12 HOURS
     Route: 048
     Dates: start: 2018, end: 20221025
  3. PREGABALIN [Concomitant]
     Active Substance: PREGABALIN
     Indication: Prophylaxis
     Dosage: EVERY 12 HOURS
     Route: 048
     Dates: start: 202210
  4. TRAMADOL [Concomitant]
     Active Substance: TRAMADOL
     Indication: Prophylaxis
     Dosage: 1DF=15?AS NEEDED
     Route: 048
     Dates: start: 202210
  5. BUPRENORPHINE [Concomitant]
     Active Substance: BUPRENORPHINE
     Indication: Prophylaxis
     Dosage: 1DF=2 BIS; TWICE PER WEEK
     Route: 050
     Dates: start: 202210
  6. ENOXAPARIN SODIUM [Concomitant]
     Active Substance: ENOXAPARIN SODIUM
     Indication: Prophylaxis
     Dosage: BD; TWICE PER DAY
     Route: 058
     Dates: start: 202206
  7. UREN [Concomitant]
     Indication: Product used for unknown indication
     Dosage: 1DF=1?EVERY 24 HOURS
     Route: 048
     Dates: start: 20221025
  8. CYPROHEPTADI NE HYDROCHLORIDE [Concomitant]
     Indication: Decreased appetite
     Dosage: 1DF=10?EVERY 12 HOURS?APETROL(CYPROHEPTADINE HYDROCHLORIDE)
     Route: 048
     Dates: start: 20221102

REACTIONS (1)
  - Hyponatraemia [Recovered/Resolved]

NARRATIVE: CASE EVENT DATE: 20221102
